FAERS Safety Report 5226311-8 (Version None)
Quarter: 2007Q1

REPORT INFORMATION
  Report Type: 
  Country: None (occurrence: None)
  Receive Date: 20070201
  Receipt Date: 20070122
  Transmission Date: 20070707
  Serious: Yes (Other)
  Sender: FDA-Public Use
  Company Number: GB-ELI_LILLY_AND_COMPANY-GB200701003951

PATIENT
  Age: 23 Year
  Sex: Male

DRUGS (5)
  1. ZYPREXA [Suspect]
     Indication: SCHIZOPHRENIA
     Dosage: 10 MG, DAILY (1/D)
     Route: 048
     Dates: start: 20070112, end: 20070114
  2. ZYPREXA [Suspect]
     Dosage: 15 MG, DAILY (1/D)
     Route: 048
     Dates: start: 20070115
  3. ARIPIPRAZOLE [Concomitant]
  4. ERYTHROMYCIN [Concomitant]
     Indication: TONSILLITIS
     Dates: end: 20070117
  5. AMOXICILLIN [Concomitant]
     Indication: TONSILLITIS
     Dates: start: 20070117

REACTIONS (1)
  - ELECTROCARDIOGRAM ABNORMAL [None]
